FAERS Safety Report 13886118 (Version 1)
Quarter: 2017Q3

REPORT INFORMATION
  Report Type: Spontaneous
  Country: US (occurrence: US)
  Receive Date: 20170821
  Receipt Date: 20170821
  Transmission Date: 20171127
  Serious: Yes (Other)
  Sender: FDA-Public Use
  Company Number: US-ALLERGAN-1724052US

PATIENT
  Age: 49 Year
  Sex: Female

DRUGS (1)
  1. BENTYL [Suspect]
     Active Substance: DICYCLOMINE HYDROCHLORIDE
     Indication: GASTROINTESTINAL DISORDER
     Dosage: UNK, UNKNOWN
     Route: 048

REACTIONS (3)
  - Intracranial aneurysm [Unknown]
  - Cerebrovascular accident [Unknown]
  - Vomiting [Recovered/Resolved]
